FAERS Safety Report 7898695-3 (Version None)
Quarter: 2011Q4

REPORT INFORMATION
  Report Type: 
  Country: None (occurrence: None)
  Receive Date: 20111107
  Receipt Date: 20110603
  Transmission Date: 20120403
  Serious: Yes (Other)
  Sender: FDA-Public Use
  Company Number: PE-JNJFOC-20110603121

PATIENT
  Age: 17 Month
  Sex: Female
  Weight: 12 kg

DRUGS (3)
  1. UNSPECIFIED CREAMS NOS [Suspect]
     Indication: DERMATITIS DIAPER
     Route: 065
     Dates: start: 20110531
  2. CHAMOMILE [Suspect]
     Indication: DERMATITIS DIAPER
     Route: 065
     Dates: start: 20110531
  3. DESITIN CREAMY [Suspect]
     Indication: PROPHYLAXIS
     Route: 061
     Dates: start: 20100526, end: 20110531

REACTIONS (3)
  - FUNGAL INFECTION [None]
  - APPLICATION SITE BURN [None]
  - DERMATITIS DIAPER [None]
